FAERS Safety Report 20503790 (Version 4)
Quarter: 2022Q1

REPORT INFORMATION
  Report Type: Report from Study
  Country: CA (occurrence: CA)
  Receive Date: 20220222
  Receipt Date: 20220315
  Transmission Date: 20220423
  Serious: Yes (Death, Hospitalization, Other)
  Sender: FDA-Public Use
  Company Number: CA-OTSUKA-2022_001321

PATIENT
  Age: 65 Year
  Sex: Male

DRUGS (1)
  1. CEDAZURIDINE\DECITABINE [Suspect]
     Active Substance: CEDAZURIDINE\DECITABINE
     Indication: Myelodysplastic syndrome
     Dosage: UNK
     Route: 065
     Dates: start: 20220109

REACTIONS (12)
  - Death [Fatal]
  - Gastrointestinal infection [Unknown]
  - Hiatus hernia [Unknown]
  - Pyrexia [Unknown]
  - Pneumonia [Unknown]
  - Swollen tongue [Unknown]
  - Tongue erythema [Unknown]
  - Glossodynia [Unknown]
  - Nausea [Recovering/Resolving]
  - Dizziness [Unknown]
  - Fatigue [Unknown]
  - Decreased appetite [Unknown]

NARRATIVE: CASE EVENT DATE: 20220109
